FAERS Safety Report 5191543-4 (Version None)
Quarter: 2006Q4

REPORT INFORMATION
  Report Type: 
  Country: None (occurrence: None)
  Receive Date: 20061219
  Receipt Date: 20061208
  Transmission Date: 20070319
  Serious: Yes (Hospitalization, Other)
  Sender: FDA-Public Use
  Company Number: 2006129667

PATIENT
  Age: 35 Year
  Sex: Female
  Weight: 120.6568 kg

DRUGS (4)
  1. XANAX [Suspect]
     Indication: PANIC ATTACK
     Dates: start: 19840101
  2. TENORMIN [Concomitant]
  3. TYLENOL [Concomitant]
  4. ADAVIN             (NICERGOLINE) [Suspect]
     Dates: start: 19900401, end: 19901101

REACTIONS (9)
  - BEDRIDDEN [None]
  - BONE PAIN [None]
  - CONVULSION [None]
  - FEAR [None]
  - GAIT DISTURBANCE [None]
  - MOBILITY DECREASED [None]
  - NEUROPATHY PERIPHERAL [None]
  - PAIN IN EXTREMITY [None]
  - PARALYSIS [None]
